FAERS Safety Report 17879036 (Version 1)
Quarter: 2020Q2

REPORT INFORMATION
  Report Type: Spontaneous
  Country: US (occurrence: US)
  Receive Date: 20200609
  Receipt Date: 20200609
  Transmission Date: 20200714
  Serious: Yes (Hospitalization)
  Sender: FDA-Public Use
  Company Number: None

PATIENT
  Sex: Male

DRUGS (18)
  1. HUMIRA [Suspect]
     Active Substance: ADALIMUMAB
     Indication: ARTHRITIS ENTEROPATHIC
     Dosage: FORM: PEN
     Route: 058
     Dates: start: 20181023
  2. CLOBETASOL [Concomitant]
     Active Substance: CLOBETASOL
  3. METOCLOPRAM [Concomitant]
     Active Substance: METOCLOPRAMIDE
  4. DOK [Concomitant]
     Active Substance: DOCUSATE SODIUM
  5. FINASTERIDE. [Concomitant]
     Active Substance: FINASTERIDE
  6. METOPROL SUC [Concomitant]
  7. TRAZODONE [Concomitant]
     Active Substance: TRAZODONE HYDROCHLORIDE
  8. AMOX/K CLAV [Concomitant]
     Active Substance: AMOXICILLIN\CLAVULANATE POTASSIUM
  9. CHLORTHALID [Concomitant]
     Active Substance: CHLORTHALIDONE
  10. DULOXETINE. [Concomitant]
     Active Substance: DULOXETINE
  11. CYCLOCENZAPR [Concomitant]
  12. HYDROCO/APAP [Concomitant]
     Active Substance: ACETAMINOPHEN\HYDROCODONE
  13. LINSINOPRIL [Concomitant]
     Active Substance: LISINOPRIL
  14. MELOXICAM. [Concomitant]
     Active Substance: MELOXICAM
  15. NAPROXEN. [Concomitant]
     Active Substance: NAPROXEN
  16. OXYCODONE AND ACETAMINOPHEN [Concomitant]
     Active Substance: ACETAMINOPHEN\OXYCODONE HYDROCHLORIDE
  17. PRAVASTATIN. [Concomitant]
     Active Substance: PRAVASTATIN
  18. SENNA [Concomitant]
     Active Substance: SENNA LEAF\SENNOSIDES\SENNOSIDES A AND B

REACTIONS (1)
  - Spinal operation [None]
